FAERS Safety Report 20096131 (Version 1)
Quarter: 2021Q4

REPORT INFORMATION
  Report Type: Spontaneous
  Country: US (occurrence: US)
  Receive Date: 20211122
  Receipt Date: 20211122
  Transmission Date: 20220303
  Serious: No
  Sender: FDA-Public Use
  Company Number: US-MYLANLABS-2021M1077978

PATIENT
  Sex: Female
  Weight: 86.18 kg

DRUGS (1)
  1. ESTRADIOL TRANSDERMAL SYSTEM [Suspect]
     Active Substance: ESTRADIOL
     Indication: Hormone replacement therapy
     Dosage: 0.1 MG OF ESTRADIOL PER DAY (TWICE-WEEKLY)
     Route: 062

REACTIONS (2)
  - Product adhesion issue [Unknown]
  - Adverse drug reaction [Unknown]
